FAERS Safety Report 4996223-3 (Version None)
Quarter: 2006Q2

REPORT INFORMATION
  Report Type: 
  Country: None (occurrence: None)
  Receive Date: 20060508
  Receipt Date: 20060428
  Transmission Date: 20061013
  Serious: Yes (Hospitalization)
  Sender: FDA-Public Use
  Company Number: US-ABBOTT-06P-163-0332050-00

PATIENT
  Sex: Female
  Weight: 62.425 kg

DRUGS (5)
  1. DILAUDID [Suspect]
     Indication: BONE PAIN
     Route: 048
     Dates: start: 20050101, end: 20060403
  2. DILAUDID [Suspect]
     Dosage: INCREASED
     Dates: start: 20060403
  3. SB-715992 [Suspect]
     Indication: BREAST CANCER METASTATIC
     Dosage: 18 MG/M2
     Route: 042
     Dates: start: 20060310
  4. FENTANYL [Suspect]
     Indication: BONE PAIN
     Route: 061
     Dates: start: 20050101, end: 20060403
  5. FENTANYL [Suspect]
     Dosage: INCREASED
     Dates: start: 20060403

REACTIONS (3)
  - ABDOMINAL PAIN [None]
  - RIB FRACTURE [None]
  - SPINAL COMPRESSION FRACTURE [None]
